FAERS Safety Report 7139104-1 (Version None)
Quarter: 2010Q4

REPORT INFORMATION
  Report Type: 
  Country: None (occurrence: None)
  Receive Date: 20101206
  Receipt Date: 20101130
  Transmission Date: 20110411
  Serious: Yes (Other)
  Sender: FDA-Public Use
  Company Number: B0687388A

PATIENT
  Sex: Male
  Weight: 84 kg

DRUGS (2)
  1. DUTASTERIDE [Suspect]
     Indication: BENIGN PROSTATIC HYPERPLASIA
     Dosage: .5MG PER DAY
     Route: 048
     Dates: start: 20071002
  2. TAMSULOSIN [Concomitant]
     Dates: start: 20071002, end: 20090101

REACTIONS (1)
  - PROCEDURAL COMPLICATION [None]
